FAERS Safety Report 8234028-0 (Version None)
Quarter: 2012Q1

REPORT INFORMATION
  Report Type: 
  Country: None (occurrence: None)
  Receive Date: 20120326
  Receipt Date: 20120320
  Transmission Date: 20120608
  Serious: No
  Sender: FDA-Public Use
  Company Number: US-BAYER-2012-028463

PATIENT
  Age: 29 Year
  Sex: Male
  Weight: 104 kg

DRUGS (2)
  1. ALEVE (CAPLET) [Suspect]
     Route: 048
  2. PEPCID AC [Concomitant]

REACTIONS (4)
  - ERYTHEMA [None]
  - DRY THROAT [None]
  - AGITATION [None]
  - PRURITUS [None]
